FAERS Safety Report 4711311-4 (Version None)
Quarter: 2005Q3

REPORT INFORMATION
  Report Type: 
  Country: None (occurrence: None)
  Receive Date: 20050711
  Receipt Date: 20050705
  Transmission Date: 20060218
  Serious: Yes (Other)
  Sender: FDA-Public Use
  Company Number: CHNY2005CA01255

PATIENT
  Age: 23 Year
  Sex: Female

DRUGS (1)
  1. EX-LAX EXTRA STRENGTH [Suspect]
     Indication: CONSTIPATION
     Dosage: 50 MG, ONCE/SINGLE, ORAL;  25 MG, ONCE/SINGLE, ORAL
     Route: 048
     Dates: start: 20050621, end: 20050621

REACTIONS (4)
  - ABDOMINAL PAIN [None]
  - AMNESIA [None]
  - LOSS OF CONSCIOUSNESS [None]
  - POOR QUALITY DRUG ADMINISTERED [None]
